FAERS Safety Report 6053982-9 (Version None)
Quarter: 2009Q1

REPORT INFORMATION
  Report Type: 
  Country: None (occurrence: None)
  Receive Date: 20090127
  Receipt Date: 20090116
  Transmission Date: 20090719
  Serious: Yes (Other)
  Sender: FDA-Public Use
  Company Number: US-MERCK-0901USA02679

PATIENT
  Age: 74 Year
  Sex: Female

DRUGS (17)
  1. DECADRON [Suspect]
     Indication: MULTIPLE MYELOMA
     Route: 048
     Dates: start: 20080901, end: 20080901
  2. REVLIMID [Suspect]
     Indication: MULTIPLE MYELOMA
     Route: 048
     Dates: start: 20080909, end: 20080911
  3. PROCRIT [Concomitant]
     Route: 065
  4. ATENOLOL [Concomitant]
     Route: 065
  5. MOTRIN [Concomitant]
     Route: 065
  6. VICODIN [Concomitant]
     Route: 065
  7. OMEPRAZOLE [Concomitant]
     Route: 065
  8. LASIX [Concomitant]
     Route: 065
  9. K-TAB [Concomitant]
     Route: 065
  10. ISORDIL [Concomitant]
     Route: 065
  11. ATIVAN [Concomitant]
     Route: 065
  12. COMPAZINE [Concomitant]
     Route: 065
  13. NOVOLIN [Concomitant]
     Route: 065
  14. GLIPIZIDE [Concomitant]
     Route: 065
  15. QVAR 40 [Concomitant]
     Route: 065
  16. WARFARIN [Concomitant]
     Route: 065
  17. MEVACOR [Concomitant]
     Route: 048

REACTIONS (4)
  - BRONCHITIS [None]
  - RASH [None]
  - SWELLING FACE [None]
  - VIRAL INFECTION [None]
